FAERS Safety Report 9117943 (Version 2)
Quarter: 2013Q2

REPORT INFORMATION
  Report Type: Spontaneous
  Country: US (occurrence: US)
  Receive Date: 20130225
  Receipt Date: 20130419
  Transmission Date: 20140414
  Serious: Yes (Other)
  Sender: FDA-Public Use
  Company Number: CHPA2012US020536

PATIENT
  Age: 49 Year
  Sex: Female

DRUGS (2)
  1. GAS-X EXTSTR CHEWABLE TABS CHERRY CREME [Suspect]
     Indication: FLATULENCE
     Dosage: 3 DF, QD
     Route: 048
     Dates: start: 201209, end: 201209
  2. GAS-X EXTSTR CHEWABLE TABS CHERRY CREME [Suspect]
     Dosage: UNK, UNK
     Route: 048
     Dates: start: 20130217, end: 20130217

REACTIONS (4)
  - Blood glucose increased [Recovered/Resolved]
  - Abdominal distension [Recovered/Resolved]
  - Condition aggravated [Recovered/Resolved]
  - Drug ineffective [Unknown]
